FAERS Safety Report 7910230-X (Version None)
Quarter: 2011Q4

REPORT INFORMATION
  Report Type: 
  Country: None (occurrence: None)
  Receive Date: 20111111
  Receipt Date: 20111026
  Transmission Date: 20120403
  Serious: Yes (Hospitalization)
  Sender: FDA-Public Use
  Company Number: JP-UCBSA-028606

PATIENT
  Age: 51 Year
  Sex: Female

DRUGS (5)
  1. RHEUMATREX [Suspect]
     Indication: RHEUMATOID ARTHRITIS
     Dosage: 8MG/WEEK
     Route: 048
     Dates: start: 20080711, end: 20110212
  2. MUCOSTA [Concomitant]
     Dosage: DAILY DOSE: 200 MG
     Route: 048
     Dates: start: 20110411
  3. CERTOLIZUMAB PEGOL [Suspect]
     Indication: RHEUMATOID ARTHRITIS
     Route: 058
     Dates: start: 20090715, end: 20110114
  4. MUCOSTA [Concomitant]
     Indication: PROPHYLAXIS
     Dosage: DAILY DOSE:200MG
     Route: 048
     Dates: start: 20090422, end: 20110213
  5. FOLIC ACID [Concomitant]
     Indication: RHEUMATOID ARTHRITIS
     Dosage: DAILY DOSE : 5MG
     Route: 048
     Dates: start: 20080615, end: 20110213

REACTIONS (1)
  - B-CELL LYMPHOMA [None]
